FAERS Safety Report 7308665-1 (Version None)
Quarter: 2011Q1

REPORT INFORMATION
  Report Type: 
  Country: None (occurrence: None)
  Receive Date: 20110223
  Receipt Date: 20110209
  Transmission Date: 20110831
  Serious: Yes (Other)
  Sender: FDA-Public Use
  Company Number: PHHY2010NL52165

PATIENT
  Sex: Female
  Weight: 85 kg

DRUGS (10)
  1. LEPONEX [Suspect]
     Indication: PSYCHOTIC DISORDER
     Dosage: 25 MG, UNK
     Dates: start: 20100601, end: 20100621
  2. LEPONEX [Suspect]
     Dosage: 75 MG, UNK
  3. DIAZEPAM [Concomitant]
     Dosage: 5 MG, 3 DD1
  4. LEPONEX [Suspect]
     Dosage: 50 MG, UNK
  5. EFFEXOR XR [Concomitant]
     Dosage: 37.5 MG, BID
  6. OMEPRAZOLE [Concomitant]
     Dosage: 20 MG, 1 DD
  7. HALDOL [Concomitant]
     Dosage: 1MG, 1DD1
  8. XYZAL [Concomitant]
     Dosage: 5 MG, 1 DD
  9. BLOOD THINNERS [Concomitant]
     Dosage: UNK
  10. TRAMADOL HCL [Concomitant]
     Dosage: 50 MG, 3 DD2

REACTIONS (8)
  - PYREXIA [None]
  - OEDEMA PERIPHERAL [None]
  - CONTUSION [None]
  - MYALGIA [None]
  - PAIN IN EXTREMITY [None]
  - ARTHRALGIA [None]
  - GAIT DISTURBANCE [None]
  - MONOPLEGIA [None]
